FAERS Safety Report 6099193-2 (Version None)
Quarter: 2009Q1

REPORT INFORMATION
  Report Type: 
  Country: None (occurrence: None)
  Receive Date: 20090303
  Receipt Date: 20090219
  Transmission Date: 20090719
  Serious: Yes (Death)
  Sender: FDA-Public Use
  Company Number: FR-RANBAXY-2009RR-22060

PATIENT
  Age: 52 Year
  Sex: Male

DRUGS (10)
  1. CLARITHROMYCIN [Suspect]
  2. RIFATER [Suspect]
  3. ETHAMBUTOL HCL [Suspect]
  4. CEFOTAXIME [Concomitant]
  5. GENTAMICIN [Concomitant]
  6. METRONIDAZOLE [Concomitant]
  7. OXAZEPAM [Concomitant]
  8. VENLAFAXINE HCL [Concomitant]
  9. DISULFIRAM [Concomitant]
  10. ACAMPROSATE [Concomitant]

REACTIONS (2)
  - BACTERIAL INFECTION [None]
  - DRUG INEFFECTIVE [None]
